FAERS Safety Report 25852319 (Version 1)
Quarter: 2025Q3

REPORT INFORMATION
  Report Type: Spontaneous
  Country: US (occurrence: None)
  Receive Date: 20250925
  Receipt Date: 20250925
  Transmission Date: 20251021
  Serious: Yes (Death)
  Sender: FDA-CTU
  Company Number: None

PATIENT
  Age: 71 Year
  Sex: Female

DRUGS (1)
  1. VENCLEXTA [Suspect]
     Active Substance: VENETOCLAX
     Dosage: 70MG QD ORAL
     Route: 048

REACTIONS (5)
  - Fall [None]
  - Upper limb fracture [None]
  - Platelet count decreased [None]
  - General physical health deterioration [None]
  - Therapy cessation [None]
